FAERS Safety Report 21315118 (Version 4)
Quarter: 2023Q2

REPORT INFORMATION
  Report Type: Spontaneous
  Country: US (occurrence: US)
  Receive Date: 20220909
  Receipt Date: 20230612
  Transmission Date: 20230722
  Serious: Yes (Other)
  Sender: FDA-Public Use
  Company Number: US-PFIZER INC-202201139363

PATIENT
  Age: 88 Year
  Sex: Male
  Weight: 64.86 kg

DRUGS (1)
  1. VYNDAMAX [Suspect]
     Active Substance: TAFAMIDIS
     Indication: Amyloidosis senile
     Dosage: 61 MG
     Dates: start: 2018

REACTIONS (7)
  - Hypothyroidism [Unknown]
  - Platelet count decreased [Unknown]
  - Body height decreased [Unknown]
  - Posture abnormal [Unknown]
  - Gallbladder disorder [Unknown]
  - COVID-19 [Unknown]
  - Off label use [Unknown]
